FAERS Safety Report 11388544 (Version 4)
Quarter: 2015Q4

REPORT INFORMATION
  Report Type: Report from Study
  Country: BR (occurrence: BR)
  Receive Date: 20150817
  Receipt Date: 20151005
  Transmission Date: 20160304
  Serious: Yes (Death)
  Sender: FDA-Public Use
  Company Number: PHHY2015BR099150

PATIENT
  Sex: Female

DRUGS (1)
  1. ACLASTA [Suspect]
     Active Substance: ZOLEDRONIC ACID
     Indication: PRODUCT USED FOR UNKNOWN INDICATION
     Dosage: UNK
     Route: 065
     Dates: start: 201409

REACTIONS (6)
  - Pain [Unknown]
  - Condition aggravated [Unknown]
  - Abdominal pain upper [Unknown]
  - Death [Fatal]
  - Asthenia [Unknown]
  - Pyrexia [Unknown]
